FAERS Safety Report 11213061 (Version 1)
Quarter: 2015Q2

REPORT INFORMATION
  Report Type: Spontaneous
  Country: US (occurrence: US)
  Receive Date: 20150623
  Receipt Date: 20150623
  Transmission Date: 20150821
  Serious: No
  Sender: FDA-Public Use
  Company Number: US-009507513-1506USA005139

PATIENT
  Age: 20 Year
  Sex: Female
  Weight: 81.63 kg

DRUGS (1)
  1. NEXPLANON [Suspect]
     Active Substance: ETONOGESTREL
     Indication: CONTRACEPTION
     Dosage: FREQUENCY: 3 YEARS
     Dates: start: 20150513

REACTIONS (7)
  - Menstrual disorder [Unknown]
  - Vomiting [Unknown]
  - Chills [Unknown]
  - Movement disorder [Unknown]
  - Pain [Unknown]
  - Pyrexia [Unknown]
  - Diarrhoea [Unknown]

NARRATIVE: CASE EVENT DATE: 201506
